FAERS Safety Report 14000364 (Version 1)
Quarter: 2017Q3

REPORT INFORMATION
  Report Type: Spontaneous
  Country: US (occurrence: US)
  Receive Date: 20170922
  Receipt Date: 20170922
  Transmission Date: 20171128
  Serious: No
  Sender: FDA-Public Use
  Company Number: US-BAYER-2017-181366

PATIENT
  Age: 8 Year
  Sex: Female

DRUGS (1)
  1. MIRALAX [Suspect]
     Active Substance: POLYETHYLENE GLYCOL 3350
     Indication: ENCOPRESIS
     Dosage: 0.25 DF, QD
     Route: 048
     Dates: start: 201703

REACTIONS (7)
  - Product use in unapproved indication [Unknown]
  - Product taste abnormal [Unknown]
  - Product use issue [Unknown]
  - Product odour abnormal [Unknown]
  - Inappropriate prescribing [Unknown]
  - Circumstance or information capable of leading to medication error [Unknown]
  - Poor quality drug administered [None]

NARRATIVE: CASE EVENT DATE: 2017
